FAERS Safety Report 7947858-7 (Version None)
Quarter: 2011Q4

REPORT INFORMATION
  Report Type: 
  Country: None (occurrence: None)
  Receive Date: 20111130
  Receipt Date: 20111117
  Transmission Date: 20120403
  Serious: Yes (Death)
  Sender: FDA-Public Use
  Company Number: IR-RANBAXY-2011RR-50557

PATIENT
  Age: 47 Year
  Sex: Female

DRUGS (2)
  1. COTRIM [Suspect]
     Indication: URINARY TRACT INFECTION
     Dosage: 460 MG, BID
     Route: 065
  2. RISPERIDONE [Suspect]
     Indication: ACUTE PSYCHOSIS
     Dosage: 4 MG/ DAY
     Route: 065

REACTIONS (3)
  - SUDDEN CARDIAC DEATH [None]
  - DRUG INTERACTION [None]
  - VENTRICULAR TACHYARRHYTHMIA [None]
